FAERS Safety Report 13603701 (Version 1)
Quarter: 2017Q2

REPORT INFORMATION
  Report Type: Spontaneous
  Country: JP (occurrence: JP)
  Receive Date: 20170602
  Receipt Date: 20170602
  Transmission Date: 20170830
  Serious: Yes (Death, Life-Threatening, Other)
  Sender: FDA-Public Use
  Company Number: JP-009507513-1701JPN009191

PATIENT
  Age: 50 Year
  Sex: Female
  Weight: 47 kg

DRUGS (4)
  1. CANCIDAS [Suspect]
     Active Substance: CASPOFUNGIN ACETATE
     Indication: BRONCHOPULMONARY ASPERGILLOSIS
     Dosage: 70 MG, QD
     Route: 041
     Dates: start: 20160514, end: 20160514
  2. CEFEPIME [Concomitant]
     Active Substance: CEFEPIME HYDROCHLORIDE
     Indication: SEPSIS
     Dosage: 2 G, BID
     Route: 051
     Dates: start: 20160514, end: 20160521
  3. RECOMODULIN [Concomitant]
     Active Substance: THROMBOMODULIN ALFA
     Indication: DISSEMINATED INTRAVASCULAR COAGULATION
     Dosage: 19200 IU, QD
     Route: 051
     Dates: start: 20160516, end: 20160521
  4. CANCIDAS [Suspect]
     Active Substance: CASPOFUNGIN ACETATE
     Indication: BRONCHOPULMONARY ASPERGILLOSIS
     Dosage: 50 MG, QD
     Route: 041
     Dates: start: 20160515, end: 20160517

REACTIONS (4)
  - Disseminated intravascular coagulation [Not Recovered/Not Resolved]
  - Drug ineffective [Unknown]
  - White blood cell count decreased [Not Recovered/Not Resolved]
  - Sepsis [Fatal]

NARRATIVE: CASE EVENT DATE: 20160514
